FAERS Safety Report 24353408 (Version 1)
Quarter: 2024Q3

REPORT INFORMATION
  Report Type: Spontaneous
  Country: CO (occurrence: CO)
  Receive Date: 20240923
  Receipt Date: 20240923
  Transmission Date: 20241016
  Serious: No
  Sender: ROCHE
  Company Number: CO-ROCHE-3457085

PATIENT

DRUGS (9)
  1. HERCEPTIN [Suspect]
     Active Substance: TRASTUZUMAB
     Indication: Product used for unknown indication
     Dosage: DOSE AND FREQUENCY WERE NOT REPORTED, 440 MG INJECTABLE POWDER VIAL
     Route: 041
  2. HERCEPTIN [Suspect]
     Active Substance: TRASTUZUMAB
     Dosage: DOSE AND FREQUENCY WERE NOT REPORTED, 440 MG INJECTABLE POWDER VIAL
     Route: 041
  3. HERCEPTIN [Suspect]
     Active Substance: TRASTUZUMAB
     Dosage: DOSE AND FREQUENCY WERE NOT REPORTED, 440 MG INJECTABLE POWDER VIAL
     Route: 041
  4. TECENTRIQ [Suspect]
     Active Substance: ATEZOLIZUMAB
     Indication: Product used for unknown indication
     Dosage: DOSE AND FREQUENCY WERE NOT REPORTED, 200MG/10ML(20MG/ML) INJECTABLE SOLUTION PACKAGE X 1 AMPOLE
     Route: 041
  5. PERJETA [Suspect]
     Active Substance: PERTUZUMAB
     Indication: Product used for unknown indication
     Dosage: DOSE AND FREQUENCY WERE NOT REPORTED, 440 MG INJECTABLE POWDER VIAL
     Route: 065
  6. MABTHERA [Suspect]
     Active Substance: RITUXIMAB
     Indication: Product used for unknown indication
     Dosage: DOSE AND FREQUENCY WERE NOT REPORTED, 200MG/10ML(20MG/ML) INJECTABLE SOLUTION PACKAGE X 1 AMPOLE
     Route: 041
  7. ACTEMRA [Suspect]
     Active Substance: TOCILIZUMAB
     Indication: Product used for unknown indication
     Dosage: DOSE AND FREQUENCY WERE NOT REPORTED, 440 MG INJECTABLE POWDER VIAL
     Route: 042
  8. ACTEMRA [Suspect]
     Active Substance: TOCILIZUMAB
     Dosage: DOSE AND FREQUENCY WERE NOT REPORTED, 200MG/10ML(20MG/ML) INJECTABLE SOLUTION PACKAGE X 1 AMPOLE
     Route: 042
  9. ACTEMRA [Suspect]
     Active Substance: TOCILIZUMAB
     Dosage: DOSE AND FREQUENCY WERE NOT REPORTED, 200MG/10ML(20MG/ML) INJECTABLE SOLUTION PACKAGE X 1 AMPOLE
     Route: 042

REACTIONS (2)
  - Product storage error [Unknown]
  - No adverse event [Unknown]

NARRATIVE: CASE EVENT DATE: 20231022
